FAERS Safety Report 6300564-7 (Version None)
Quarter: 2009Q3

REPORT INFORMATION
  Report Type: 
  Country: None (occurrence: None)
  Receive Date: 20090806
  Receipt Date: 20090324
  Transmission Date: 20100115
  Serious: Yes (Hospitalization)
  Sender: FDA-Public Use
  Company Number: US-ABBOTT-09P-163-0564215-00

PATIENT
  Age: 23 Year
  Sex: Male

DRUGS (2)
  1. DEPAKOTE ER [Suspect]
     Indication: CONVULSION
     Dosage: GENERIC DIVALPROEX SODIUM
     Route: 048
     Dates: start: 20081101
  2. DEPAKOTE ER [Suspect]
     Indication: MIGRAINE
     Dosage: DEPAKOTE
     Route: 048
     Dates: start: 20090319

REACTIONS (2)
  - AMMONIA INCREASED [None]
  - CONVULSION [None]
